FAERS Safety Report 15321791 (Version 2)
Quarter: 2018Q3

REPORT INFORMATION
  Report Type: Report from Study
  Country: US (occurrence: US)
  Receive Date: 20180827
  Receipt Date: 20180912
  Transmission Date: 20181010
  Serious: Yes (Hospitalization)
  Sender: FDA-Public Use
  Company Number: US-CLOVIS ONCOLOGY-CLO-2018-001097

PATIENT
  Sex: Female
  Weight: 90.7 kg

DRUGS (6)
  1. RUBRACA [Suspect]
     Active Substance: RUCAPARIB CAMSYLATE
     Dosage: 1 PILL IN THE AM AND TWO PILLS IN THE PM
     Route: 048
     Dates: start: 20180808, end: 20180810
  2. RUBRACA [Suspect]
     Active Substance: RUCAPARIB CAMSYLATE
     Dosage: 600 MG, UNK
     Route: 065
     Dates: start: 20180718
  3. RUBRACA [Suspect]
     Active Substance: RUCAPARIB CAMSYLATE
     Indication: OVARIAN CANCER
     Dosage: 600 MG, BID
     Route: 048
     Dates: start: 20180720, end: 20180808
  4. SYNTHROID [Concomitant]
     Active Substance: LEVOTHYROXINE SODIUM
     Indication: PRODUCT USED FOR UNKNOWN INDICATION
     Dosage: UNK
     Route: 065
     Dates: start: 20180720
  5. EFFEXOR [Concomitant]
     Active Substance: VENLAFAXINE HYDROCHLORIDE
     Indication: PRODUCT USED FOR UNKNOWN INDICATION
     Dosage: UNK
     Route: 065
     Dates: start: 20180720
  6. MULTIVITAMIN FOR WOMEN [Concomitant]
     Indication: PRODUCT USED FOR UNKNOWN INDICATION
     Dosage: UNK
     Route: 065
     Dates: start: 20180720

REACTIONS (9)
  - Dysgeusia [Unknown]
  - Renal failure [Unknown]
  - Nausea [Recovered/Resolved]
  - Asthenia [Recovered/Resolved]
  - Fatigue [Unknown]
  - Renal impairment [Recovered/Resolved]
  - Weight decreased [Recovered/Resolved]
  - Fluid retention [Unknown]
  - Hypophagia [Recovered/Resolved]

NARRATIVE: CASE EVENT DATE: 2018
